FAERS Safety Report 18034291 (Version 1)
Quarter: 2020Q3

REPORT INFORMATION
  Report Type: Spontaneous
  Country: AU (occurrence: AU)
  Receive Date: 20200716
  Receipt Date: 20200716
  Transmission Date: 20201103
  Serious: Yes (Death, Other)
  Sender: FDA-Public Use
  Company Number: AU-PFIZER INC-2020267696

PATIENT
  Age: 60 Year
  Sex: Male

DRUGS (3)
  1. SUCCINYLCHOLINE CHLORIDE. [Suspect]
     Active Substance: SUCCINYLCHOLINE CHLORIDE
     Dosage: 75 MG
  2. PROPOFOL. [Concomitant]
     Active Substance: PROPOFOL
     Dosage: 200 MG
  3. ATROPINE SULFATE. [Concomitant]
     Active Substance: ATROPINE SULFATE
     Dosage: 0.6 MG
     Route: 042

REACTIONS (3)
  - Cardiac arrest [Fatal]
  - Anaphylactic reaction [Fatal]
  - Pupil fixed [Not Recovered/Not Resolved]
